FAERS Safety Report 15863805 (Version 1)
Quarter: 2019Q1

REPORT INFORMATION
  Report Type: Spontaneous
  Country: US (occurrence: US)
  Receive Date: 20190124
  Receipt Date: 20190124
  Transmission Date: 20190417
  Serious: No
  Sender: FDA-Public Use
  Company Number: US-ENDO PHARMACEUTICALS INC-2018-025858

PATIENT
  Sex: Male
  Weight: 86.17 kg

DRUGS (1)
  1. TESTOSTERONE. [Suspect]
     Active Substance: TESTOSTERONE
     Indication: BLOOD TESTOSTERONE DECREASED
     Dosage: 2 PUMPS ON EACH INNER THIGH A DAY, TOTAL 4 PUMPS A DAY
     Route: 061

REACTIONS (4)
  - Product odour abnormal [Unknown]
  - Energy increased [Unknown]
  - Product physical issue [Unknown]
  - Blood testosterone decreased [Unknown]
